FAERS Safety Report 8838836 (Version 1)
Quarter: 2012Q4

REPORT INFORMATION
  Report Type: Spontaneous
  Country: US (occurrence: None)
  Receive Date: 20121011
  Receipt Date: 20121011
  Transmission Date: 20130627
  Serious: Yes (Hospitalization, Other)
  Sender: FDA-Public Use
  Company Number: None

PATIENT
  Age: 5 Year
  Sex: Male
  Weight: 23.59 kg

DRUGS (1)
  1. VYVANSE [Suspect]
     Dosage: 15 MG 1x daily po
     Route: 048
     Dates: start: 20120928, end: 20121006

REACTIONS (3)
  - Dystonia [None]
  - Drug prescribing error [None]
  - Incorrect dose administered [None]
